FAERS Safety Report 8586298-7 (Version None)
Quarter: 2012Q3

REPORT INFORMATION
  Report Type: 
  Country: None (occurrence: None)
  Receive Date: 20120810
  Receipt Date: 19940301
  Transmission Date: 20120928
  Serious: Yes (Hospitalization)
  Sender: FDA-Public Use
  Company Number: US-ROCHE-1098171

PATIENT
  Age: 44 Year
  Sex: Male

DRUGS (2)
  1. ACTIVASE [Suspect]
     Indication: ACUTE MYOCARDIAL INFARCTION
  2. ZANTAC [Concomitant]
     Indication: ULCER

REACTIONS (3)
  - PLEURITIC PAIN [None]
  - VENTRICULAR TACHYCARDIA [None]
  - VENTRICULAR ARRHYTHMIA [None]
